FAERS Safety Report 9550425 (Version 2)
Quarter: 2014Q2

REPORT INFORMATION
  Report Type: Spontaneous
  Country: US (occurrence: US)
  Receive Date: 20130924
  Receipt Date: 20140402
  Transmission Date: 20141212
  Serious: No
  Sender: FDA-Public Use
  Company Number: US-SANOFI-AVENTIS-2013SA077229

PATIENT
  Age: 50 Year
  Sex: Male

DRUGS (5)
  1. AUBAGIO [Suspect]
     Indication: MULTIPLE SCLEROSIS
     Route: 048
     Dates: start: 20130724, end: 20130910
  2. AZOR [Concomitant]
  3. VALIUM [Concomitant]
  4. FENTANYL [Concomitant]
  5. BETAMETHASONE [Concomitant]

REACTIONS (3)
  - Hepatic enzyme decreased [Unknown]
  - Insomnia [Unknown]
  - Nausea [Unknown]
